FAERS Safety Report 5938115-9 (Version None)
Quarter: 2008Q4

REPORT INFORMATION
  Report Type: 
  Country: None (occurrence: None)
  Receive Date: 20081031
  Receipt Date: 20081023
  Transmission Date: 20090506
  Serious: Yes (Other)
  Sender: FDA-Public Use
  Company Number: US-TYCO HEALTHCARE/MALLINCKRODT-T200801732

PATIENT

DRUGS (12)
  1. OPTIMARK [Suspect]
     Indication: ANGIOGRAM
     Dosage: 20 ML (CC), UNK
     Dates: start: 20060420
  2. LANTUS [Concomitant]
     Indication: DIABETES MELLITUS
     Dosage: 13 IU, UNK
     Dates: start: 20070228
  3. HUMALOG [Concomitant]
     Indication: DIABETES MELLITUS
     Dosage: 1 UNIT FOR 10 GRAMS OF CARDS
     Dates: start: 20070228
  4. WARFARIN SODIUM [Concomitant]
     Indication: ANTICOAGULANT THERAPY
     Dosage: 12 MG, UNK
     Dates: start: 20070101
  5. BICARBONATE [Concomitant]
     Indication: DIALYSIS
     Dosage: 334 MG, UNK
  6. SYNTHROID [Concomitant]
     Indication: HYPOTHYROIDISM
     Dosage: 50 MG, UNK
  7. DAILY-VITE [Concomitant]
     Indication: VITAMIN SUPPLEMENTATION
     Dosage: UNK, QD X 1
  8. SENSIPAR [Concomitant]
     Indication: HYPOTHYROIDISM
     Dosage: 60 MG, UNK
  9. MIDODRINE [Concomitant]
     Indication: HYPERTENSION
     Dosage: 10 MG, UNK
  10. PHOSLO [Concomitant]
     Indication: MINERAL DEFICIENCY
     Dosage: 667 MG, UNK
  11. FOSRENOL [Concomitant]
     Indication: PROPHYLAXIS AGAINST GASTROINTESTINAL ULCER
     Dosage: 2000 MG, WITH MEALS
  12. INSULIN [Concomitant]
     Indication: DIABETES MELLITUS

REACTIONS (1)
  - NEPHROGENIC SYSTEMIC FIBROSIS [None]
